FAERS Safety Report 18886220 (Version 1)
Quarter: 2021Q1

REPORT INFORMATION
  Report Type: Spontaneous
  Country: US (occurrence: US)
  Receive Date: 20210212
  Receipt Date: 20210212
  Transmission Date: 20210420
  Serious: No
  Sender: FDA-Public Use
  Company Number: US-TEVA-2020-US-1862870

PATIENT
  Sex: Female

DRUGS (1)
  1. AJOVY [Suspect]
     Active Substance: FREMANEZUMAB-VFRM
     Indication: MIGRAINE
     Dosage: 225 MG/ 1.5 ML
     Route: 065
     Dates: start: 202008

REACTIONS (4)
  - Illness [Unknown]
  - Drug dose omission by device [Unknown]
  - Nausea [Unknown]
  - Drug delivery system malfunction [Unknown]
